FAERS Safety Report 17306276 (Version 1)
Quarter: 2020Q1

REPORT INFORMATION
  Report Type: Spontaneous
  Country: US (occurrence: US)
  Receive Date: 20200123
  Receipt Date: 20200123
  Transmission Date: 20200409
  Serious: Yes (Other)
  Sender: FDA-Public Use
  Company Number: US-AMGEN-USASP2020005866

PATIENT
  Age: 68 Year
  Sex: Male
  Weight: 150.2 kg

DRUGS (6)
  1. XGEVA [Suspect]
     Active Substance: DENOSUMAB
     Indication: PROSTATE CANCER
     Dosage: UNK
     Route: 065
  2. XTANDI [Concomitant]
     Active Substance: ENZALUTAMIDE
     Dosage: 160 MILLIGRAM, QD
     Route: 065
  3. ZOMETA [Concomitant]
     Active Substance: ZOLEDRONIC ACID
     Dosage: 2 MILLIGRAM
     Route: 065
  4. FIRMAGON [Concomitant]
     Active Substance: DEGARELIX ACETATE
  5. LUPRON [Concomitant]
     Active Substance: LEUPROLIDE ACETATE
  6. ZOMETA [Concomitant]
     Active Substance: ZOLEDRONIC ACID
     Dosage: 4 MILLIGRAM
     Route: 065

REACTIONS (10)
  - Fall [Unknown]
  - Libido decreased [Unknown]
  - Gynaecomastia [Unknown]
  - Neck pain [Unknown]
  - Headache [Recovered/Resolved]
  - Osteoarthritis [Not Recovered/Not Resolved]
  - Musculoskeletal chest pain [Unknown]
  - Erectile dysfunction [Unknown]
  - Sluggishness [Unknown]
  - Apathy [Unknown]
